FAERS Safety Report 16179075 (Version 1)
Quarter: 2019Q2

REPORT INFORMATION
  Report Type: Spontaneous
  Country: CA (occurrence: CA)
  Receive Date: 20190410
  Receipt Date: 20190410
  Transmission Date: 20190711
  Serious: Yes (Hospitalization, Other)
  Sender: FDA-Public Use
  Company Number: CA-TEVA-2019-CA-1037185

PATIENT
  Age: 10 Year

DRUGS (1)
  1. DOXORUBICIN [Suspect]
     Active Substance: DOXORUBICIN
     Indication: NEUROBLASTOMA
     Dosage: CUMULATIVE DOSE: 300 MG/M2
     Dates: start: 2005, end: 200508

REACTIONS (1)
  - Cardiotoxicity [Recovered/Resolved with Sequelae]

NARRATIVE: CASE EVENT DATE: 200508
